FAERS Safety Report 5812630-0 (Version None)
Quarter: 2008Q3

REPORT INFORMATION
  Report Type: 
  Country: None (occurrence: None)
  Receive Date: 20080711
  Receipt Date: 20080701
  Transmission Date: 20090109
  Serious: Yes (Death)
  Sender: FDA-Public Use
  Company Number: 2008AL003226

PATIENT
  Age: 91 Year
  Sex: Male
  Weight: 72.5755 kg

DRUGS (4)
  1. DIGOXIN [Suspect]
     Indication: TACHYCARDIA
     Dosage: 0.125MG, PO
     Route: 048
     Dates: start: 20071212
  2. GLYBURIDE [Concomitant]
  3. ALPHAGAN [Concomitant]
  4. NORVASC [Concomitant]

REACTIONS (1)
  - DEATH [None]
